FAERS Safety Report 8035972-X (Version None)
Quarter: 2012Q1

REPORT INFORMATION
  Report Type: 
  Country: None (occurrence: None)
  Receive Date: 20120111
  Receipt Date: 20110630
  Transmission Date: 20120608
  Serious: Yes (Hospitalization, Other)
  Sender: FDA-Public Use
  Company Number: BR-TEVA-316735ISR

PATIENT
  Sex: Female

DRUGS (3)
  1. CARBAMAZEPINE [Suspect]
     Dosage: 400 MILLIGRAM;
     Route: 048
  2. CARBAMAZEPINE [Suspect]
     Dosage: 200 MILLIGRAM;
     Route: 048
     Dates: start: 20110620, end: 20110622
  3. CARBAMAZEPINE [Suspect]
     Indication: HEADACHE
     Dosage: 200 MILLIGRAM;
     Route: 048
     Dates: start: 20110609

REACTIONS (12)
  - HYPERTENSION [None]
  - DYSGEUSIA [None]
  - PAIN [None]
  - DENGUE FEVER [None]
  - SYNCOPE [None]
  - HYPERSENSITIVITY [None]
  - HYPERGLYCAEMIA [None]
  - HEADACHE [None]
  - RASH [None]
  - OFF LABEL USE [None]
  - PYREXIA [None]
  - PRURITUS [None]
